FAERS Safety Report 10092634 (Version 1)
Quarter: 2014Q2

REPORT INFORMATION
  Report Type: Spontaneous
  Country: US (occurrence: US)
  Receive Date: 20140421
  Receipt Date: 20140421
  Transmission Date: 20141212
  Serious: No
  Sender: FDA-Public Use
  Company Number: US-SANOFI-AVENTIS-2013SA060530

PATIENT
  Sex: Female

DRUGS (5)
  1. ALLEGRA [Suspect]
     Dosage: TAKEN FROM- FOR 2-3 WEEKS
     Route: 065
  2. INSULIN [Concomitant]
  3. SYNTHROID [Concomitant]
  4. METOPROLOL [Concomitant]
  5. HYDROXYZINE [Concomitant]
     Dosage: FREQUENCY- AT NIGHT

REACTIONS (1)
  - Off label use [Unknown]
